FAERS Safety Report 18723906 (Version 1)
Quarter: 2021Q1

REPORT INFORMATION
  Report Type: Spontaneous
  Country: CN (occurrence: CN)
  Receive Date: 20210111
  Receipt Date: 20210111
  Transmission Date: 20210419
  Serious: Yes (Hospitalization)
  Sender: FDA-Public Use
  Company Number: CN-LUPIN PHARMACEUTICALS INC.-2020-11694

PATIENT
  Age: 79 Year
  Sex: Female

DRUGS (4)
  1. KETOTIFEN [Suspect]
     Active Substance: KETOTIFEN
     Indication: COUGH
     Dosage: 1 MILLIGRAM, QD
     Route: 065
  2. ALPRAZOLAM. [Interacting]
     Active Substance: ALPRAZOLAM
     Indication: INSOMNIA
     Dosage: 0.4 MILLIGRAM, QD (LONG?STANDING THERAPY (}1 YEAR))
     Route: 065
  3. CLARITHROMYCIN. [Interacting]
     Active Substance: CLARITHROMYCIN
     Indication: SINUSITIS
     Dosage: 250 MILLIGRAM, BID
     Route: 065
  4. ZOLPIDEM [Suspect]
     Active Substance: ZOLPIDEM TARTRATE
     Indication: INSOMNIA
     Dosage: 10 MILLIGRAM, QD (AT BEDTIME; LONG?STANDING THERAPY (}1 YEAR))
     Route: 065

REACTIONS (5)
  - Condition aggravated [Recovering/Resolving]
  - Muscular weakness [Recovered/Resolved]
  - Amnesia [Recovering/Resolving]
  - Lethargy [Recovered/Resolved]
  - Sedation complication [Recovering/Resolving]
